FAERS Safety Report 6067345-3 (Version None)
Quarter: 2009Q1

REPORT INFORMATION
  Report Type: 
  Country: None (occurrence: None)
  Receive Date: 20090204
  Receipt Date: 20090204
  Transmission Date: 20090719
  Serious: No
  Sender: FDA-Public Use
  Company Number: None

PATIENT
  Sex: Male
  Weight: 108.8633 kg

DRUGS (3)
  1. ALLOPURINOL [Suspect]
     Indication: GOUT
     Dosage: ONE DAILY PO
     Route: 048
     Dates: start: 20090120, end: 20090201
  2. ALLOPURINOL [Suspect]
     Indication: PROPHYLAXIS
     Dosage: ONE DAILY PO
     Route: 048
     Dates: start: 20090120, end: 20090201
  3. ALLOPURINOL [Suspect]
     Indication: GOUT
     Dosage: ONE DAILY PO
     Route: 048
     Dates: start: 20090120, end: 20090201

REACTIONS (2)
  - GOUT [None]
  - PRODUCT QUALITY ISSUE [None]
